FAERS Safety Report 9277044 (Version 2)
Quarter: 2013Q2

REPORT INFORMATION
  Report Type: Spontaneous
  Country: US (occurrence: US)
  Receive Date: 20130507
  Receipt Date: 20130614
  Transmission Date: 20140414
  Serious: Yes (Other)
  Sender: FDA-Public Use
  Company Number: US-009507513-1305USA001552

PATIENT
  Age: 50 Year
  Sex: Female

DRUGS (1)
  1. DEXAMETHASONE [Suspect]
     Indication: PERITUMOURAL OEDEMA
     Dosage: HIGH-DOSE
     Route: 048

REACTIONS (6)
  - Brain tumour operation [Recovered/Resolved]
  - Treatment failure [Recovered/Resolved]
  - Drug dependence [Recovered/Resolved]
  - Amnesia [Recovered/Resolved]
  - Vision blurred [Recovered/Resolved]
  - Oedema [Recovered/Resolved]
